FAERS Safety Report 8243595-2 (Version None)
Quarter: 2012Q1

REPORT INFORMATION
  Report Type: 
  Country: None (occurrence: None)
  Receive Date: 20120315
  Receipt Date: 20100324
  Transmission Date: 20120608
  Serious: Yes (Other)
  Sender: FDA-Public Use
  Company Number: PHHY2010US18732

PATIENT
  Sex: Female

DRUGS (1)
  1. FANAPT [Suspect]
     Indication: SCHIZOPHRENIA
     Dosage: 6 MG, BID, ORAL
     Route: 048
     Dates: start: 20100303, end: 20100318

REACTIONS (1)
  - WEIGHT INCREASED [None]
